FAERS Safety Report 10188463 (Version 2)
Quarter: 2014Q3

REPORT INFORMATION
  Report Type: Spontaneous
  Country: PT (occurrence: None)
  Receive Date: 20140520
  Receipt Date: 20140718
  Transmission Date: 20150326
  Serious: Yes (Life-Threatening, Hospitalization, Other)
  Sender: FDA-Public Use
  Company Number: 2014P1004053

PATIENT
  Age: 59 Year
  Sex: Female

DRUGS (14)
  1. CEFTRIAXONE (CEFTRIAXONE) (UNKNOWN) (CEFTRIAXONE) [Concomitant]
  2. POTASSIUM CHLORIDE (POTASSIUM CHLORIDE)?(UNKNOWN) (POTASSIUM CHLORIDE)? [Concomitant]
  3. DEPAKINE CHRONO 500 (VALPROATE SODIUM) (TABLETS) (VALPROATE SODIUM) [Concomitant]
  4. PANTOPRAZOLE (PANTOPRAZOLE) (UNKNOWN) (PANTOPRAZOLE) [Concomitant]
  5. ACYCLOVIR (ACICLOVIR) (UNKNOWN) (ACICLOVIR) [Concomitant]
  6. CYANOCOBALAMIN + PYRIDOXINE + THIAMINE (BEFACT /00527001/) (UNKNOWN) (THIAMINE, PYRIDOXINE, CYANOCOBALAMIN) [Concomitant]
  7. LOSARTAN (LOSARTAN) (UNKNOWN) (LOSARTAN) [Concomitant]
  8. ENOXAPARIN SODIUM (ENOXAPARIN SODIUM) (UNKNOWN) (ENOXAPARIN SODIUM) [Concomitant]
  9. AMPICILLIN (AMPICILLIN) (UNKNOWN) (AMPICILLIN) [Concomitant]
  10. VANCOMYCIN [Suspect]
     Active Substance: VANCOMYCIN
     Indication: ENCEPHALITIS
     Dosage: 1440 MG (1440 MG, 1 IN 1 D), INTRAVENOUS BOLUS
     Route: 040
     Dates: start: 20140208, end: 20140214
  11. ACETYLSALICYLIC ACID (ACETYLSALICYLIC ACID) (UNKNOWN) (ACETYLSALICYLIC ACID) [Concomitant]
  12. THIAMINE (THIAMINE) (UNKNOWN) (THIAMINE) [Concomitant]
  13. AMLODIPINE (AMLODIPINE) (UNKNOWN) (AMLODIPINE) [Concomitant]
  14. NPH INSULIN (ISOPHANE INSULIN) (UNKNOWN) (ISOPHANE INSULIN) [Concomitant]

REACTIONS (1)
  - Toxic epidermal necrolysis [None]

NARRATIVE: CASE EVENT DATE: 20140214
